FAERS Safety Report 11980002 (Version 1)
Quarter: 2016Q1

REPORT INFORMATION
  Report Type: Report from Study
  Country: US (occurrence: US)
  Receive Date: 20160129
  Receipt Date: 20160129
  Transmission Date: 20160526
  Serious: No
  Sender: FDA-Public Use
  Company Number: US-ABBVIE-15K-163-1413222-00

PATIENT
  Age: 53 Year
  Sex: Female

DRUGS (2)
  1. HUMIRA [Suspect]
     Active Substance: ADALIMUMAB
     Route: 058
     Dates: start: 20151110
  2. HUMIRA [Suspect]
     Active Substance: ADALIMUMAB
     Indication: PSORIATIC ARTHROPATHY
     Route: 058
     Dates: start: 20150503, end: 20150529

REACTIONS (6)
  - Rash [Not Recovered/Not Resolved]
  - Injection site pruritus [Recovered/Resolved]
  - Injection site warmth [Unknown]
  - Injection site swelling [Recovered/Resolved]
  - Injection site erythema [Recovered/Resolved]
  - Psoriasis [Recovering/Resolving]

NARRATIVE: CASE EVENT DATE: 2015
